FAERS Safety Report 7788657-9 (Version None)
Quarter: 2011Q3

REPORT INFORMATION
  Report Type: 
  Country: None (occurrence: None)
  Receive Date: 20110930
  Receipt Date: 20110928
  Transmission Date: 20111222
  Serious: Yes (Hospitalization)
  Sender: FDA-Public Use
  Company Number: FR-BRISTOL-MYERS SQUIBB COMPANY-16090813

PATIENT
  Age: 59 Year
  Sex: Male
  Weight: 68 kg

DRUGS (4)
  1. URAPIDIL [Concomitant]
     Indication: HYPERTENSION
  2. ABACAVIR SULFATE AND LAMIVUDINE [Concomitant]
     Indication: HIV INFECTION
     Dosage: ABACAVIR 600 MG, LAMIVUDINE 300 MG
  3. SUSTIVA [Suspect]
     Indication: HIV INFECTION
     Dosage: INITIATED WITH 200MG,3/D AND ALSO TAKEN 150MG/D AS ORAL SOLUTION
     Route: 050
     Dates: start: 20110528, end: 20110529
  4. COLCHICINE [Concomitant]
     Indication: GOUT

REACTIONS (3)
  - RESTLESSNESS [None]
  - INCORRECT DRUG DOSAGE FORM ADMINISTERED [None]
  - ABNORMAL BEHAVIOUR [None]
